FAERS Safety Report 6862325-X (Version None)
Quarter: 2010Q3

REPORT INFORMATION
  Report Type: 
  Country: None (occurrence: None)
  Receive Date: 20100721
  Receipt Date: 20100708
  Transmission Date: 20110219
  Serious: Yes (Hospitalization, Other)
  Sender: FDA-Public Use
  Company Number: PHEH2007US03988

PATIENT
  Sex: Male
  Weight: 93.424 kg

DRUGS (39)
  1. ELIDEL [Suspect]
     Indication: ECZEMA
     Dosage: 1%, 30 GM
     Route: 061
     Dates: start: 20010101
  2. ELIDEL [Suspect]
     Dates: start: 20050101
  3. HYDROCODONE [Concomitant]
  4. HYDROXYZINE [Concomitant]
  5. CHONDROITIN A [Concomitant]
  6. MULTI-VITAMINS [Concomitant]
  7. COUMADIN [Concomitant]
  8. VENTOLIN [Concomitant]
  9. ARISTOCORT A [Concomitant]
  10. IBUPROFEN [Concomitant]
  11. ATIVAN [Concomitant]
  12. FLONASE [Concomitant]
     Route: 045
  13. DEPO-MEDROL [Concomitant]
  14. ZOMETA [Concomitant]
     Dosage: 4 MG / MONTHLY
     Dates: start: 20050815, end: 20061101
  15. AREDIA [Concomitant]
     Dosage: 90 MG  / EVERY 3 MONTHS
     Dates: start: 20061107, end: 20070430
  16. AREDIA [Concomitant]
     Dosage: 90 MG / EVERY 3 MONTHS
     Dates: start: 20080414
  17. SULFAMETHOXYPYRAZINE/TRIMETHOPRIM [Concomitant]
     Dosage: 800/160 MG / BID
  18. ALBUTEROL [Concomitant]
     Dosage: UNK
  19. ZITHROMAX [Concomitant]
     Dosage: UNK
  20. RANITIDINE [Concomitant]
     Dosage: 300 MG / DAILY
  21. WARFARIN [Concomitant]
     Dosage: 1 MG / DAILY
  22. ACYCLOVIR [Concomitant]
     Dosage: 400 MG / DAILY
  23. TAMOXIFEN [Concomitant]
     Dosage: 10 MG / TWICE DAILY
     Route: 048
  24. PEPCID [Concomitant]
     Dosage: 20 MG / BID
  25. ZOFRAN [Concomitant]
     Dosage: 8 MG / PRN
  26. BENADRYL ^ACHE^ [Concomitant]
     Dosage: 25/50 MG / EVERY 6 HRS AS NEEDED
  27. HABITROL [Concomitant]
     Dosage: UNK
     Route: 062
  28. CODEINE [Concomitant]
     Dosage: UNK
  29. CLARITIN [Concomitant]
     Dosage: UNK
     Dates: start: 20050707
  30. CHANTIX [Concomitant]
     Dosage: 0.5 MG/ DAILY
     Dates: start: 20070402, end: 20070405
  31. CHANTIX [Concomitant]
     Dosage: 0.5 MG /  BID
     Dates: start: 20070405, end: 20070412
  32. CHANTIX [Concomitant]
     Dosage: 1 MG / BID
     Dates: start: 20070412
  33. RESTORIL [Concomitant]
     Dosage: UNK
     Dates: start: 20080714
  34. BEXTRA [Concomitant]
     Dosage: 20 MG, BID
  35. NAPROXEN [Concomitant]
     Dosage: 550 MG, UNK
  36. POLYMYXIN B SULFATE W/TRIMETHOPRIM SULFATE [Concomitant]
  37. VIOXX [Concomitant]
  38. DARVOCET-N 100 [Concomitant]
  39. ATARAX [Concomitant]

REACTIONS (79)
  - ALOPECIA [None]
  - APATHY [None]
  - ARTHRALGIA [None]
  - ARTHRITIS [None]
  - ARTHROSCOPIC SURGERY [None]
  - ARTHROSCOPY [None]
  - ASTIGMATISM [None]
  - BLOOD GLUCOSE INCREASED [None]
  - BLOOD OSMOLARITY DECREASED [None]
  - BONE DENSITY DECREASED [None]
  - BONE MARROW TRANSPLANT [None]
  - BONE NEOPLASM MALIGNANT [None]
  - BRONCHITIS [None]
  - CATARACT [None]
  - CATARACT OPERATION [None]
  - CONDITION AGGRAVATED [None]
  - COSTOCHONDRITIS [None]
  - COUGH [None]
  - DEPRESSION [None]
  - DERMATITIS ATOPIC [None]
  - DEVICE RELATED INFECTION [None]
  - DRY EYE [None]
  - DRY SKIN [None]
  - DYSPNOEA [None]
  - ERYTHEMA [None]
  - EXOSTOSIS [None]
  - EYE LASER SURGERY [None]
  - EYE PAIN [None]
  - EYELID MARGIN CRUSTING [None]
  - FATIGUE [None]
  - FOLLICULITIS [None]
  - GASTROOESOPHAGEAL REFLUX DISEASE [None]
  - HAEMORRHAGE [None]
  - HERPES ZOSTER [None]
  - HYPERGLYCAEMIA [None]
  - HYPERLIPIDAEMIA [None]
  - HYPERMETROPIA [None]
  - HYPOTHYROIDISM [None]
  - INCREASED APPETITE [None]
  - INSOMNIA [None]
  - JOINT RANGE OF MOTION DECREASED [None]
  - JOINT SWELLING [None]
  - LEFT VENTRICULAR HYPERTROPHY [None]
  - LEUKOPENIA [None]
  - LIVER DISORDER [None]
  - MULTIPLE MYELOMA [None]
  - MUSCULOSKELETAL CHEST PAIN [None]
  - MUSCULOSKELETAL DISORDER [None]
  - NAUSEA [None]
  - NEUROPATHY PERIPHERAL [None]
  - NEUTROPENIA [None]
  - OBESITY [None]
  - PAIN [None]
  - PHARYNGITIS [None]
  - PHOTOPSIA [None]
  - PLASMACYTOMA [None]
  - POLYDIPSIA [None]
  - POLYURIA [None]
  - PRESBYOPIA [None]
  - PRURITUS [None]
  - PYREXIA [None]
  - RASH [None]
  - RASH VESICULAR [None]
  - ROSACEA [None]
  - ROTATOR CUFF SYNDROME [None]
  - SEBORRHOEIC DERMATITIS [None]
  - SKIN LESION [None]
  - SLEEP DISORDER [None]
  - STAPHYLOCOCCAL BACTERAEMIA [None]
  - STEM CELL TRANSPLANT [None]
  - STOMATITIS [None]
  - TENDON RUPTURE [None]
  - THROMBOCYTOPENIA [None]
  - TYPE 2 DIABETES MELLITUS [None]
  - UPPER-AIRWAY COUGH SYNDROME [None]
  - VISION BLURRED [None]
  - VITREOUS FLOATERS [None]
  - VOMITING [None]
  - WEIGHT DECREASED [None]
